FAERS Safety Report 15504987 (Version 1)
Quarter: 2018Q4

REPORT INFORMATION
  Report Type: Spontaneous
  Country: US (occurrence: US)
  Receive Date: 20181016
  Receipt Date: 20181016
  Transmission Date: 20190205
  Serious: No
  Sender: FDA-Public Use
  Company Number: US-SA-2018SA284378

PATIENT
  Age: 48 Year
  Sex: Female

DRUGS (2)
  1. AMBIEN [Suspect]
     Active Substance: ZOLPIDEM TARTRATE
     Route: 065
  2. LITHIUM. [Suspect]
     Active Substance: LITHIUM

REACTIONS (2)
  - Empty nest syndrome [Unknown]
  - Thinking abnormal [Unknown]
